FAERS Safety Report 19831493 (Version 3)
Quarter: 2021Q4

REPORT INFORMATION
  Report Type: Spontaneous
  Country: US (occurrence: US)
  Receive Date: 20210915
  Receipt Date: 20211006
  Transmission Date: 20220303
  Serious: Yes (Hospitalization)
  Sender: FDA-Public Use
  Company Number: US-UNITED THERAPEUTICS-UNT-2021-017554

PATIENT
  Age: 61 Year
  Sex: Female
  Weight: 111.11 kg

DRUGS (6)
  1. REMODULIN [Suspect]
     Active Substance: TREPROSTINIL
     Indication: Pulmonary arterial hypertension
     Dosage: UNK, CONTINUING
     Route: 058
     Dates: start: 20210901
  2. REMODULIN [Suspect]
     Active Substance: TREPROSTINIL
     Dosage: 0.040 ?G/KG, CONTINUING
     Route: 058
     Dates: start: 202109
  3. REMODULIN [Suspect]
     Active Substance: TREPROSTINIL
     Dosage: 0.044 ?G/KG, CONTINUING
     Route: 058
     Dates: start: 202109
  4. UPTRAVI [Suspect]
     Active Substance: SELEXIPAG
     Indication: Pulmonary arterial hypertension
     Dosage: 1600 MG, BID
     Route: 048
     Dates: end: 2021
  5. ADEMPAS [Concomitant]
     Active Substance: RIOCIGUAT
     Indication: Product used for unknown indication
     Dosage: UNK
     Route: 065
  6. XARELTO [Concomitant]
     Active Substance: RIVAROXABAN
     Indication: Product used for unknown indication
     Dosage: UNK
     Route: 065

REACTIONS (11)
  - Fall [Recovered/Resolved with Sequelae]
  - Oxygen saturation decreased [Unknown]
  - Contusion [Unknown]
  - Dizziness [Unknown]
  - Dyspnoea exertional [Unknown]
  - Infusion site erythema [Unknown]
  - Infusion site warmth [Unknown]
  - Unintentional medical device removal [Recovered/Resolved]
  - Pain in extremity [Unknown]
  - Hypotension [Unknown]
  - Rib fracture [Unknown]

NARRATIVE: CASE EVENT DATE: 20210901
